FAERS Safety Report 5592946-6 (Version None)
Quarter: 2008Q1

REPORT INFORMATION
  Report Type: 
  Country: None (occurrence: None)
  Receive Date: 20080114
  Receipt Date: 20080114
  Transmission Date: 20080703
  Serious: No
  Sender: FDA-Public Use
  Company Number: None

PATIENT
  Sex: Male
  Weight: 68.0396 kg

DRUGS (2)
  1. TPPD 5 TO/0.1 ML SANOFI PASTEUR LIMITED [Suspect]
     Indication: TUBERCULIN TEST
     Dosage: 0.1 ML ROUTINE  ID
     Route: 026
     Dates: start: 20071231, end: 20071231
  2. TPPD 5 TO/0.1 ML SANOFI PASTEUR LIMITED [Suspect]
     Indication: TUBERCULIN TEST
     Dosage: 0.1 ML ROUTINE  ID
     Route: 026
     Dates: start: 20071201, end: 20080109

REACTIONS (3)
  - INJECTION SITE INDURATION [None]
  - INJECTION SITE PRURITUS [None]
  - SKIN REACTION [None]
